FAERS Safety Report 4482098-8 (Version None)
Quarter: 2004Q3

REPORT INFORMATION
  Report Type: 
  Country: None (occurrence: None)
  Receive Date: 20040921
  Receipt Date: 20030903
  Transmission Date: 20050211
  Serious: Yes (Other)
  Sender: FDA-Public Use
  Company Number: 163-20785-03070176(1)

PATIENT
  Age: 62 Year
  Sex: Female

DRUGS (3)
  1. THALOMID [Suspect]
     Indication: MULTIPLE MYELOMA
     Dosage: 200 MG, DAILY, ORAL
     Route: 048
     Dates: start: 19990101
  2. ALLOPURINOL [Concomitant]
  3. VITAMINS (VITAMINS) [Concomitant]

REACTIONS (1)
  - AMYLOIDOSIS [None]
